FAERS Safety Report 15603904 (Version 1)
Quarter: 2018Q4

REPORT INFORMATION
  Report Type: Spontaneous
  Country: KW (occurrence: KW)
  Receive Date: 20181109
  Receipt Date: 20181109
  Transmission Date: 20190205
  Serious: Yes (Death, Other)
  Sender: FDA-Public Use
  Company Number: KW-009507513-1811KWT003710

PATIENT
  Age: 38 Year
  Sex: Female

DRUGS (1)
  1. CASPOFUNGIN ACETATE. [Suspect]
     Active Substance: CASPOFUNGIN ACETATE
     Indication: SYSTEMIC CANDIDA
     Dosage: UNK

REACTIONS (2)
  - Drug ineffective [Fatal]
  - Pathogen resistance [Fatal]
